FAERS Safety Report 15791290 (Version 1)
Quarter: 2019Q1

REPORT INFORMATION
  Report Type: Spontaneous
  Country: US (occurrence: US)
  Receive Date: 20190104
  Receipt Date: 20190104
  Transmission Date: 20190417
  Serious: No
  Sender: FDA-Public Use
  Company Number: US-ALLERMED LABORATORIES, INC.-2060882

PATIENT
  Sex: Female

DRUGS (25)
  1. POLLENS - TREES, WALNUT, BLACK JUGLANS NIGRA [Suspect]
     Active Substance: JUGLANS NIGRA POLLEN
     Route: 058
  2. POLLENS - WEEDS AND GARDEN PLANTS, RAGWEED, MIXED AMBROSIA [Suspect]
     Active Substance: AMBROSIA ARTEMISIIFOLIA POLLEN\AMBROSIA TRIFIDA POLLEN
     Route: 058
  3. DOG EPITHELIA [Suspect]
     Active Substance: CANIS LUPUS FAMILIARIS SKIN
     Route: 058
  4. STANDARDIZED BERMUDA GRASS [Suspect]
     Active Substance: CYNODON DACTYLON POLLEN
     Indication: MULTIPLE ALLERGIES
     Route: 058
  5. POLLENS - TREES, EASTERN OAK MIX [Suspect]
     Active Substance: QUERCUS ALBA POLLEN\QUERCUS RUBRA POLLEN\QUERCUS VELUTINA POLLEN
     Route: 058
  6. POLLENS - TREES, CEDAR, RED JUNIPERUS VIRGINIANA [Suspect]
     Active Substance: JUNIPERUS VIRGINIANA POLLEN
     Route: 058
  7. POLLENS - TREES, COTTONWOOD, EASTERN, POPULUS DELTOIDES [Suspect]
     Active Substance: POPULUS DELTOIDES POLLEN
     Route: 058
  8. STANDARDIZED MITE MIX [Suspect]
     Active Substance: DERMATOPHAGOIDES FARINAE\DERMATOPHAGOIDES PTERONYSSINUS
     Route: 058
  9. POLLENS - TREES, BIRCH MIX [Suspect]
     Active Substance: BETULA NIGRA POLLEN\BETULA PAPYRIFERA POLLEN\BETULA PENDULA POLLEN
     Route: 058
  10. POLLENS - TREES, BOXELDER/MAPLE MIX [Suspect]
     Active Substance: ACER NEGUNDO POLLEN\ACER RUBRUM POLLEN\ACER SACCHARUM POLLEN
     Route: 058
  11. POLLENS - GRASSES, JOHNSON GRASS SORGHUM HALEPENSE [Suspect]
     Active Substance: SORGHUM HALEPENSE POLLEN
     Route: 058
  12. INSECTS (WHOLE BODY) COCKROACH MIX [Suspect]
     Active Substance: BLATELLA GERMANICA\PERIPLANETA AMERICANA
     Route: 058
  13. POLLENS - GRASSES, BAHIA GRASS PASPALUM NOTATUM [Suspect]
     Active Substance: PASPALUM NOTATUM POLLEN
     Route: 058
  14. PIGWEED MIX [Suspect]
     Active Substance: AMARANTHUS HYBRIDUS POLLEN\AMARANTHUS PALMERI POLLEN\AMARANTHUS RETROFLEXUS POLLEN
     Route: 058
  15. POLLENS - WEEDS AND GARDEN PLANTS, PLANTAIN, ENGLISH PLANTAGO LANCEOLATA [Suspect]
     Active Substance: PLANTAGO LANCEOLATA POLLEN
     Route: 058
  16. POLLENS - WEEDS AND GARDEN PLANTS, DOG FENNEL EUPATORIUM CAPILLIFOLIUM [Suspect]
     Active Substance: EUPATORIUM CAPILLIFOLIUM POLLEN
     Route: 058
  17. ALTERNARIA ALTERNATA. [Suspect]
     Active Substance: ALTERNARIA ALTERNATA
     Route: 058
  18. EPICOCCUM NIGRUM. [Suspect]
     Active Substance: EPICOCCUM NIGRUM
     Route: 058
  19. ASH MIXTURE [Suspect]
     Active Substance: FRAXINUS AMERICANA POLLEN\FRAXINUS PENNSYLVANICA POLLEN
     Route: 058
  20. POLLENS - TREES, ELM, AMERICAN ULMUS AMERICANA [Suspect]
     Active Substance: ULMUS AMERICANA POLLEN
     Route: 058
  21. WHITE HICKORY [Suspect]
     Active Substance: CARYA TOMENTOSA POLLEN
     Route: 058
  22. POLLENS - WEEDS, DOCK/SORREL MIX [Suspect]
     Active Substance: RUMEX ACETOSELLA POLLEN\RUMEX CRISPUS POLLEN
     Route: 058
  23. POLLENS - TREES, PALM, QUEEN COCOS PLUMOSA [Suspect]
     Active Substance: SYAGRUS ROMANZOFFIANA POLLEN
     Route: 058
  24. STANDARDIZED GRASS POLLEN, GRASS MIX 7 [Suspect]
     Active Substance: AGROSTIS GIGANTEA POLLEN\ANTHOXANTHUM ODORATUM POLLEN\DACTYLIS GLOMERATA POLLEN\FESTUCA PRATENSIS POLLEN\LOLIUM PERENNE POLLEN\PHLEUM PRATENSE POLLEN\POA PRATENSIS POLLEN
     Route: 058
  25. STANDARDIZED CAT HAIR [Suspect]
     Active Substance: FELIS CATUS HAIR
     Route: 058

REACTIONS (1)
  - Injection site reaction [Unknown]
